FAERS Safety Report 11563870 (Version 1)
Quarter: 2015Q3

REPORT INFORMATION
  Report Type: Spontaneous
  Country: US (occurrence: US)
  Receive Date: 20150928
  Receipt Date: 20150928
  Transmission Date: 20151125
  Serious: No
  Sender: FDA-Public Use
  Company Number: US-WATSON-2015-16627

PATIENT
  Sex: Female

DRUGS (2)
  1. GABAPENTIN (AELLC) [Suspect]
     Active Substance: GABAPENTIN
     Indication: RESTLESS LEGS SYNDROME
  2. GABAPENTIN (AELLC) [Suspect]
     Active Substance: GABAPENTIN
     Indication: NEURALGIA
     Dosage: 300 MG, TWICE DAILY
     Route: 048

REACTIONS (3)
  - Ocular discomfort [Not Recovered/Not Resolved]
  - Vision blurred [Recovered/Resolved]
  - Vertigo [Not Recovered/Not Resolved]
